FAERS Safety Report 8984307 (Version 1)
Quarter: 2012Q4

REPORT INFORMATION
  Report Type: Spontaneous
  Country: GB (occurrence: None)
  Receive Date: 20121217
  Receipt Date: 20121217
  Transmission Date: 20130627
  Serious: Yes (Other)
  Sender: FDA-Public Use
  Company Number: AUR-APL-2012-05269

PATIENT
  Age: 43 Year
  Sex: Female

DRUGS (3)
  1. CITALOPRAM (CITALOPRAM) [Suspect]
     Indication: ANXIETY
     Route: 048
     Dates: start: 20121021, end: 20121023
  2. BECLOMETASONE (BECLOMETASONE) [Concomitant]
  3. VENTOLIN (SALBUTAMOL) [Concomitant]

REACTIONS (1)
  - Angle closure glaucoma [None]
